FAERS Safety Report 16745179 (Version 1)
Quarter: 2019Q3

REPORT INFORMATION
  Report Type: Spontaneous
  Country: US (occurrence: US)
  Receive Date: 20190717
  Receipt Date: 20190717
  Transmission Date: 20191005
  Serious: Yes (Life-Threatening, Disabling)
  Sender: FDA-Public Use
  Company Number: None

PATIENT
  Age: 60 Year
  Sex: Female
  Weight: 61.23 kg

DRUGS (17)
  1. FLUTICASONE. [Concomitant]
     Active Substance: FLUTICASONE
  2. LOSARTAN. [Concomitant]
     Active Substance: LOSARTAN
  3. CYANOCOBALAMIN. [Concomitant]
     Active Substance: CYANOCOBALAMIN
  4. OMEPRAZOLE. [Concomitant]
     Active Substance: OMEPRAZOLE
  5. ADVAIR HFA [Concomitant]
     Active Substance: FLUTICASONE PROPIONATE\SALMETEROL XINAFOATE
  6. VITAMIN D3 [Concomitant]
     Active Substance: CHOLECALCIFEROL
  7. WARFARIN [Concomitant]
     Active Substance: WARFARIN
  8. ENOXAPARIN SODIUM INJECTION [Suspect]
     Active Substance: ENOXAPARIN SODIUM
     Indication: THROMBOSIS
     Dosage: ?          QUANTITY:60 MG MILLIGRAM(S);OTHER FREQUENCY:EVRY12HR/TWICEDAY;?
     Route: 058
     Dates: start: 201412, end: 201512
  9. MAGNESIUM [Concomitant]
     Active Substance: MAGNESIUM
  10. MONTELUKAST [Concomitant]
     Active Substance: MONTELUKAST SODIUM
  11. PREDNISONE. [Concomitant]
     Active Substance: PREDNISONE
  12. HYDROCHLOROTHIAZIDE. [Concomitant]
     Active Substance: HYDROCHLOROTHIAZIDE
  13. NAPROXEN. [Concomitant]
     Active Substance: NAPROXEN
  14. IBUPROFEN. [Concomitant]
     Active Substance: IBUPROFEN
  15. CARVEDILOL. [Concomitant]
     Active Substance: CARVEDILOL
  16. PEACEMAKER IMPLANT [Concomitant]
  17. AMLODIPINE [Concomitant]
     Active Substance: AMLODIPINE BESYLATE

REACTIONS (7)
  - Injection site erythema [None]
  - Paraesthesia [None]
  - Injection site pain [None]
  - Muscular weakness [None]
  - Injection site swelling [None]
  - Injection site discolouration [None]
  - Squamous cell carcinoma of skin [None]

NARRATIVE: CASE EVENT DATE: 201412
